FAERS Safety Report 5426515-5 (Version None)
Quarter: 2007Q3

REPORT INFORMATION
  Report Type: 
  Country: None (occurrence: None)
  Receive Date: 20070827
  Receipt Date: 20070814
  Transmission Date: 20080115
  Serious: Yes (Hospitalization)
  Sender: FDA-Public Use
  Company Number: US-ELI_LILLY_AND_COMPANY-US200708003018

PATIENT
  Sex: Female

DRUGS (9)
  1. CYMBALTA [Suspect]
     Dosage: 30 MG, 2/D
  2. DULCOLAX [Concomitant]
  3. KLONOPIN [Concomitant]
  4. DOCUSATE [Concomitant]
  5. BENADRYL [Concomitant]
  6. LEVANOX [Concomitant]
  7. METHADONE HCL [Concomitant]
  8. SENOKOT [Concomitant]
  9. DILAUDID [Concomitant]

REACTIONS (2)
  - INJURY [None]
  - ROAD TRAFFIC ACCIDENT [None]
